FAERS Safety Report 13823329 (Version 2)
Quarter: 2018Q3

REPORT INFORMATION
  Report Type: Spontaneous
  Country: US (occurrence: US)
  Receive Date: 20170802
  Receipt Date: 20180921
  Transmission Date: 20181010
  Serious: No
  Sender: FDA-Public Use
  Company Number: US-IGSA-GTI004647

PATIENT
  Age: 19 Year
  Sex: Female
  Weight: 57 kg

DRUGS (5)
  1. APAP [Concomitant]
     Active Substance: ACETAMINOPHEN
     Indication: PREMEDICATION
     Dosage: 1000 MG, UNK
  2. PREDNISONE. [Concomitant]
     Active Substance: PREDNISONE
     Dosage: UNK
  3. BIRTH CONTROL PILL [Concomitant]
     Active Substance: UNSPECIFIED INGREDIENT
     Dosage: UNK
  4. GAMUNEX?C [Suspect]
     Active Substance: HUMAN IMMUNOGLOBULIN G
     Indication: CHRONIC INFLAMMATORY DEMYELINATING POLYRADICULONEUROPATHY
     Dosage: 60 G, Q.M.T.
     Route: 042
     Dates: start: 20160913, end: 20160913
  5. GAMUNEX?C [Suspect]
     Active Substance: HUMAN IMMUNOGLOBULIN G
     Dosage: UNK UNK, Q.M.T.
     Route: 042
     Dates: start: 20151015

REACTIONS (5)
  - Lip swelling [Recovered/Resolved]
  - Hypersensitivity [Recovered/Resolved]
  - Pruritus [Recovered/Resolved]
  - Urticaria [Recovered/Resolved]
  - Erythema [Recovered/Resolved]

NARRATIVE: CASE EVENT DATE: 20160913
